FAERS Safety Report 18382010 (Version 1)
Quarter: 2020Q4

REPORT INFORMATION
  Report Type: Spontaneous
  Country: US (occurrence: US)
  Receive Date: 20201013
  Receipt Date: 20201013
  Transmission Date: 20210114
  Serious: Yes (Hospitalization, Other)
  Sender: FDA-Public Use
  Company Number: None

PATIENT
  Age: 48 Year
  Sex: Female
  Weight: 58.97 kg

DRUGS (1)
  1. OMEPRAZOLE (OMEPRAZOLE 20MG CAP , EC) [Suspect]
     Active Substance: OMEPRAZOLE
     Indication: GASTROOESOPHAGEAL REFLUX DISEASE
     Dosage: ?          OTHER DOSE:1 TAB;?
     Route: 048
     Dates: start: 20150810, end: 20200811

REACTIONS (3)
  - Therapy cessation [None]
  - Hypomagnesaemia [None]
  - Hypokalaemia [None]

NARRATIVE: CASE EVENT DATE: 20200811
